FAERS Safety Report 18278537 (Version 1)
Quarter: 2020Q3

REPORT INFORMATION
  Report Type: Spontaneous
  Country: ES (occurrence: ES)
  Receive Date: 20200917
  Receipt Date: 20200917
  Transmission Date: 20201103
  Serious: Yes (Other)
  Sender: FDA-Public Use
  Company Number: ES-MYLANLABS-2020M1048031

PATIENT
  Sex: Male

DRUGS (1)
  1. DUMIROX [Suspect]
     Active Substance: FLUVOXAMINE MALEATE
     Indication: PRODUCT USED FOR UNKNOWN INDICATION
     Dosage: UNK

REACTIONS (5)
  - Rectal haemorrhage [Recovered/Resolved]
  - Retinal haemorrhage [Recovered/Resolved]
  - Gingival bleeding [Recovered/Resolved]
  - Mouth haemorrhage [Recovered/Resolved]
  - Thrombosis [Recovered/Resolved]
